FAERS Safety Report 23062908 (Version 1)
Quarter: 2023Q4

REPORT INFORMATION
  Report Type: Spontaneous
  Country: CH (occurrence: CH)
  Receive Date: 20231013
  Receipt Date: 20231013
  Transmission Date: 20240110
  Serious: Yes (Death, Other)
  Sender: FDA-Public Use
  Company Number: CH-STRIDES ARCOLAB LIMITED-2023SP015483

PATIENT
  Age: 62 Year
  Sex: Female

DRUGS (8)
  1. DOXORUBICIN [Suspect]
     Active Substance: DOXORUBICIN
     Indication: Burkitt^s lymphoma
     Dosage: UNK
     Route: 065
  2. PREDNISOLONE [Suspect]
     Active Substance: PREDNISOLONE
     Indication: Burkitt^s lymphoma
     Dosage: UNK
     Route: 065
  3. RITUXIMAB [Suspect]
     Active Substance: RITUXIMAB
     Indication: Burkitt^s lymphoma
     Dosage: UNK
     Route: 065
  4. CYCLOPHOSPHAMIDE [Suspect]
     Active Substance: CYCLOPHOSPHAMIDE
     Indication: Burkitt^s lymphoma
     Dosage: UNK
     Route: 065
  5. VINCRISTINE [Suspect]
     Active Substance: VINCRISTINE
     Indication: Burkitt^s lymphoma
     Dosage: UNK
     Route: 065
  6. BLINCYTO [Suspect]
     Active Substance: BLINATUMOMAB
     Indication: Burkitt^s lymphoma
     Dosage: 9 MICROGRAM/DAY
     Route: 042
  7. BLINCYTO [Suspect]
     Active Substance: BLINATUMOMAB
     Dosage: 28 MICROGRAM/DAY
     Route: 042
  8. BLINCYTO [Suspect]
     Active Substance: BLINATUMOMAB
     Dosage: 112 MICROGRAM/DAY
     Route: 042

REACTIONS (2)
  - Drug ineffective [Fatal]
  - Clostridium difficile infection [Recovered/Resolved]
